FAERS Safety Report 8461353-0 (Version None)
Quarter: 2012Q2

REPORT INFORMATION
  Report Type: 
  Country: None (occurrence: None)
  Receive Date: 20120625
  Receipt Date: 20120612
  Transmission Date: 20120825
  Serious: No
  Sender: FDA-Public Use
  Company Number: US-JNJFOC-20120513251

PATIENT
  Sex: Male
  Weight: 108.86 kg

DRUGS (24)
  1. DURAGESIC-100 [Suspect]
     Route: 062
     Dates: end: 20060101
  2. FENTANYL CITRATE [Suspect]
     Indication: MUSCULOSKELETAL PAIN
     Dosage: 100 UG/HR PLUS 75 UG/HR
     Route: 062
     Dates: end: 20120101
  3. FENTANYL-100 [Suspect]
     Indication: NECK PAIN
     Dosage: 100 UG/HR PLUS 75 UG/HR
     Route: 062
     Dates: start: 20120101
  4. DURAGESIC-100 [Suspect]
     Indication: NECK PAIN
     Route: 062
     Dates: end: 20060101
  5. FENTANYL CITRATE [Suspect]
     Indication: BACK PAIN
     Dosage: 100 UG/HR PLUS 75 UG/HR
     Route: 062
     Dates: end: 20120101
  6. FENTANYL-100 [Suspect]
     Dosage: 100 UG/HR PLUS 50 UG/HR
     Route: 062
  7. FENTANYL-100 [Suspect]
     Dosage: 100 UG/HR PLUS 25 UG/HR
     Route: 062
  8. FENTANYL CITRATE [Suspect]
     Indication: NECK PAIN
     Dosage: 100 UG/HR PLUS 75 UG/HR
     Route: 062
     Dates: end: 20120101
  9. FENTANYL-100 [Suspect]
     Indication: BACK PAIN
     Dosage: 100 UG/HR PLUS 75 UG/HR
     Route: 062
     Dates: start: 20120101
  10. DURAGESIC-100 [Suspect]
     Indication: BACK PAIN
     Route: 062
     Dates: start: 20030101
  11. FENTANYL-100 [Suspect]
     Dosage: 100 UG/HR PLUS 50 UG/HR
     Route: 062
  12. DURAGESIC-100 [Suspect]
     Route: 062
  13. DURAGESIC-100 [Suspect]
     Route: 062
     Dates: end: 20060101
  14. DURAGESIC-100 [Suspect]
     Route: 062
  15. FENTANYL-100 [Suspect]
     Dosage: 100 UG/HR PLUS 75 UG/HR
     Route: 062
  16. FENTANYL-100 [Suspect]
     Indication: NECK PAIN
     Dosage: 100 UG/HR PLUS 75 UG/HR
     Route: 062
  17. FENTANYL-100 [Suspect]
     Indication: MUSCULOSKELETAL PAIN
     Dosage: 100 UG/HR PLUS 75 UG/HR
     Route: 062
  18. FENTANYL-100 [Suspect]
     Indication: MUSCULOSKELETAL PAIN
     Dosage: 100 UG/HR PLUS 75 UG/HR
     Route: 062
     Dates: start: 20120101
  19. DURAGESIC-100 [Suspect]
     Route: 062
  20. DURAGESIC-100 [Suspect]
     Route: 062
     Dates: start: 20030101
  21. DURAGESIC-100 [Suspect]
     Indication: MUSCULOSKELETAL PAIN
     Route: 062
     Dates: start: 20030101
  22. FENTANYL-100 [Suspect]
     Indication: BACK PAIN
     Dosage: 100 UG/HR PLUS 25 UG/HR
     Route: 062
  23. FENTANYL-100 [Suspect]
     Dosage: 100 UG/HR PLUS 50 UG/HR
     Route: 062
  24. FENTANYL-100 [Suspect]
     Dosage: 100 UG/HR PLUS 25 UG/HR
     Route: 062

REACTIONS (3)
  - PRODUCT QUALITY ISSUE [None]
  - PAIN [None]
  - WRONG TECHNIQUE IN DRUG USAGE PROCESS [None]
